FAERS Safety Report 7998689-3 (Version None)
Quarter: 2011Q4

REPORT INFORMATION
  Report Type: 
  Country: None (occurrence: None)
  Receive Date: 20111221
  Receipt Date: 20111219
  Transmission Date: 20120403
  Serious: Yes (Death, Hospitalization)
  Sender: FDA-Public Use
  Company Number: JP-BAYER-2011-031685

PATIENT
  Age: 77 Year
  Sex: Male
  Weight: 57 kg

DRUGS (5)
  1. UREPEARL [Concomitant]
     Indication: PROPHYLAXIS
     Dosage: UNK
     Route: 061
     Dates: start: 20110329, end: 20110408
  2. URSO 250 [Concomitant]
     Dosage: DAILY DOSE 600 MG
     Route: 048
  3. NITROFURANTOIN [Concomitant]
     Dosage: DAILY DOSE 1 G
     Route: 048
  4. NEXAVAR [Suspect]
     Indication: HEPATIC NEOPLASM MALIGNANT
     Dosage: 200 MG, BID
     Route: 048
     Dates: start: 20110329, end: 20110408
  5. LIVACT [Concomitant]
     Dosage: DAILY DOSE 8.3 G
     Route: 048

REACTIONS (2)
  - HEPATIC ENCEPHALOPATHY [None]
  - HEPATIC NEOPLASM MALIGNANT [None]
